FAERS Safety Report 8119849 (Version 8)
Quarter: 2014Q4

REPORT INFORMATION
  Report Type: Spontaneous
  Country: FR (occurrence: FR)
  Receive Date: 20110905
  Receipt Date: 20141022
  Transmission Date: 20150529
  Serious: Yes (Hospitalization, Other)
  Sender: FDA-Public Use
  Company Number: FR-BIOGENIDEC-2011BI032037

PATIENT
  Age: 41 Year
  Sex: Female
  Weight: 60 kg

DRUGS (11)
  1. TYSABRI [Suspect]
     Active Substance: NATALIZUMAB
     Indication: MULTIPLE SCLEROSIS
     Route: 042
     Dates: start: 20081121, end: 20110718
  2. LYRICA [Concomitant]
     Active Substance: PREGABALIN
     Route: 048
     Dates: start: 201109
  3. PROZAC [Concomitant]
     Active Substance: FLUOXETINE HYDROCHLORIDE
     Route: 048
  4. LEXOMIL [Concomitant]
     Active Substance: BROMAZEPAM
     Indication: SLEEP DISORDER
     Route: 048
     Dates: start: 201109
  5. LIORESAL [Concomitant]
     Active Substance: BACLOFEN
     Indication: MUSCLE SPASTICITY
     Route: 048
     Dates: end: 201109
  6. LIORESAL [Concomitant]
     Active Substance: BACLOFEN
     Indication: MUSCLE SPASTICITY
     Route: 048
     Dates: start: 201109
  7. LYRICA [Concomitant]
     Active Substance: PREGABALIN
     Route: 048
     Dates: end: 201109
  8. RIVOTRIL [Concomitant]
     Active Substance: CLONAZEPAM
     Route: 048
  9. OMIX [Concomitant]
     Active Substance: TAMSULOSIN HYDROCHLORIDE
     Route: 048
  10. LYRICA [Concomitant]
     Active Substance: PREGABALIN
     Route: 048
     Dates: start: 2011
  11. COPAXONE [Concomitant]
     Active Substance: GLATIRAMER ACETATE
     Indication: MULTIPLE SCLEROSIS
     Dates: start: 20110920

REACTIONS (2)
  - Progressive multifocal leukoencephalopathy [Not Recovered/Not Resolved]
  - Immune reconstitution inflammatory syndrome [Recovered/Resolved]

NARRATIVE: CASE EVENT DATE: 20110819
